FAERS Safety Report 8502645-6 (Version None)
Quarter: 2012Q3

REPORT INFORMATION
  Report Type: 
  Country: None (occurrence: None)
  Receive Date: 20120711
  Receipt Date: 20120709
  Transmission Date: 20120928
  Serious: Yes (Other)
  Sender: FDA-Public Use
  Company Number: US-TEVA-301625USA

PATIENT
  Sex: Female

DRUGS (2)
  1. TRI-PREVIFEM [Suspect]
     Indication: ORAL CONTRACEPTION
     Route: 048
  2. CLARAVIS [Suspect]
     Dosage: 60 MILLIGRAM;
     Route: 048
     Dates: start: 20101106, end: 20110501

REACTIONS (1)
  - UNINTENDED PREGNANCY [None]
